FAERS Safety Report 6768310-0 (Version None)
Quarter: 2010Q2

REPORT INFORMATION
  Report Type: 
  Country: None (occurrence: None)
  Receive Date: 20100610
  Receipt Date: 20100602
  Transmission Date: 20101027
  Serious: Yes (Hospitalization)
  Sender: FDA-Public Use
  Company Number: 2010AP001171

PATIENT
  Age: 45 Year
  Sex: Male

DRUGS (5)
  1. CLOPIDOGREL BISULFATE [Suspect]
     Indication: PERCUTANEOUS CORONARY INTERVENTION
     Dosage: 75 MG; QD PO, 75 MG; TAB_FILM; PO; QD
     Route: 048
     Dates: start: 20100422
  2. ASPIRIN [Concomitant]
  3. PERINDOPRIL ERBUMINE [Concomitant]
  4. LOVASTATIN [Concomitant]
  5. RANITIDINE [Concomitant]

REACTIONS (3)
  - ACUTE MYOCARDIAL INFARCTION [None]
  - DRUG INEFFECTIVE [None]
  - THROMBOSIS IN DEVICE [None]
